FAERS Safety Report 23067820 (Version 1)
Quarter: 2023Q4

REPORT INFORMATION
  Report Type: Spontaneous
  Country: CO (occurrence: CO)
  Receive Date: 20231016
  Receipt Date: 20231016
  Transmission Date: 20240109
  Serious: Yes (Other)
  Sender: FDA-Public Use
  Company Number: CO-ROCHE-3429342

PATIENT
  Age: 43 Year
  Sex: Female
  Weight: 53 kg

DRUGS (4)
  1. CAPECITABINE [Suspect]
     Active Substance: CAPECITABINE
     Indication: Product used for unknown indication
     Dosage: 5 CAPSULES A DAY FOR 14 DAYS (SECOND CYCLE)?DAILY DOSE: 5 DOSAGE FORM
     Route: 048
  2. KADCYLA [Suspect]
     Active Substance: ADO-TRASTUZUMAB EMTANSINE
     Indication: Breast cancer
     Route: 042
     Dates: start: 20230121, end: 20230707
  3. DOXORUBICIN [Concomitant]
     Active Substance: DOXORUBICIN
     Dosage: 16 CYCLES COMPLETED FROM MAY 2017 TO NOVEMBER 2017
     Dates: start: 201705, end: 201711
  4. PACLITAXEL [Concomitant]
     Active Substance: PACLITAXEL
     Dosage: 16 CYCLES COMPLETED FROM MAY 2017 TO NOVEMBER 2017
     Dates: start: 201705, end: 201711

REACTIONS (6)
  - Osteolysis [Unknown]
  - Neoplasm progression [Unknown]
  - Cardiotoxicity [Unknown]
  - Cardiac output decreased [Unknown]
  - Paraesthesia [Not Recovered/Not Resolved]
  - Paraesthesia oral [Not Recovered/Not Resolved]
